FAERS Safety Report 8587521-5 (Version None)
Quarter: 2012Q3

REPORT INFORMATION
  Report Type: 
  Country: None (occurrence: None)
  Receive Date: 20120810
  Receipt Date: 20120806
  Transmission Date: 20120928
  Serious: Yes (Hospitalization)
  Sender: FDA-Public Use
  Company Number: JP-AMGEN-JPNCT2012050164

PATIENT
  Age: 53 Year
  Sex: Female
  Weight: 65 kg

DRUGS (8)
  1. PEGFILGRASTIM [Suspect]
     Indication: CHEMOTHERAPY
     Dosage: 3.6 MG, QD
     Route: 058
     Dates: start: 20120111
  2. PENTASA [Concomitant]
     Indication: COLITIS ULCERATIVE
     Route: 048
  3. MAGMITT [Concomitant]
     Indication: COLITIS ULCERATIVE
     Dosage: 330 MG, UNK
     Route: 048
  4. DEXAMETHASONE SODIUM PHOSPHATE [Concomitant]
     Indication: CHEMOTHERAPY
     Route: 042
     Dates: start: 20120131, end: 20120131
  5. DECADRON PHOSPHATE [Concomitant]
     Indication: CHEMOTHERAPY
     Dosage: UNK UNK, BID
     Route: 048
     Dates: start: 20120131, end: 20120202
  6. CYCLOPHOSPHAMIDE [Concomitant]
     Indication: BREAST CANCER
     Dosage: 987.6 MG, QD
     Route: 042
     Dates: start: 20120131
  7. DOCETAXEL [Concomitant]
     Indication: BREAST CANCER
     Dosage: 120 MG, QD
     Route: 042
     Dates: start: 20120131
  8. CHLOR-TRIMETON [Concomitant]
     Indication: CHEMOTHERAPY
     Route: 042
     Dates: start: 20120131, end: 20120131

REACTIONS (1)
  - EPISTAXIS [None]
